FAERS Safety Report 24064903 (Version 1)
Quarter: 2024Q3

REPORT INFORMATION
  Report Type: Spontaneous
  Country: GB (occurrence: GB)
  Receive Date: 20240709
  Receipt Date: 20240709
  Transmission Date: 20241017
  Serious: Yes (Other)
  Sender: TEVA
  Company Number: GB-MHRA-EMIS-9965-7191017e-54e6-45ef-b8e7-ca3fd08f5bc7

PATIENT
  Age: 82 Year
  Sex: Male
  Weight: 85 kg

DRUGS (4)
  1. LISINOPRIL [Suspect]
     Active Substance: LISINOPRIL
     Indication: Chronic kidney disease
     Route: 065
     Dates: start: 20240402
  2. LISINOPRIL [Suspect]
     Active Substance: LISINOPRIL
     Indication: Chronic kidney disease
     Route: 065
  3. FEXOFENADINE [Concomitant]
     Active Substance: FEXOFENADINE HYDROCHLORIDE
     Indication: Product used for unknown indication
     Dates: start: 20240603
  4. AMLODIPINE [Concomitant]
     Active Substance: AMLODIPINE BESYLATE
     Indication: Product used for unknown indication
     Dates: start: 20240603

REACTIONS (3)
  - Lip swelling [Recovered/Resolved]
  - Cough [Recovered/Resolved]
  - Angioedema [Recovered/Resolved]
